FAERS Safety Report 5884745-2 (Version None)
Quarter: 2008Q3

REPORT INFORMATION
  Report Type: 
  Country: None (occurrence: None)
  Receive Date: 20080915
  Receipt Date: 20080915
  Transmission Date: 20090109
  Serious: No
  Sender: FDA-Public Use
  Company Number: None

PATIENT
  Age: 65 Year
  Sex: Female
  Weight: 58.514 kg

DRUGS (1)
  1. CYMBALTA [Suspect]
     Indication: HERPES ZOSTER
     Dates: start: 20080401, end: 20080824

REACTIONS (11)
  - CHEST DISCOMFORT [None]
  - CONFUSIONAL STATE [None]
  - DIZZINESS [None]
  - DRUG WITHDRAWAL SYNDROME [None]
  - FEELING OF DESPAIR [None]
  - HYPERTENSION [None]
  - MALAISE [None]
  - MOOD SWINGS [None]
  - PARAESTHESIA [None]
  - PHARYNGEAL DISORDER [None]
  - RASH [None]
